FAERS Safety Report 6528241-8 (Version None)
Quarter: 2009Q4

REPORT INFORMATION
  Report Type: 
  Country: None (occurrence: None)
  Receive Date: 20091231
  Receipt Date: 20091124
  Transmission Date: 20100525
  Serious: Yes (Hospitalization)
  Sender: FDA-Public Use
  Company Number: DSA_42261_2009

PATIENT
  Age: 65 Year
  Sex: Male

DRUGS (6)
  1. LACEROL (LACEROL-DILTIAZEM HYDROCHLORIDE) (NOT SPECIFIED) [Suspect]
     Indication: HYPERTENSION
     Dosage: (240 MG QD ORAL)
     Route: 048
     Dates: start: 20090501, end: 20090918
  2. TRANGOREX (TRANGOREX-AMIODARONE HYDROCLORIDE) (NOT SPECIFIED) [Suspect]
     Indication: ATRIAL FIBRILLATION
     Dosage: (200 MG QD ORAL)
     Route: 048
     Dates: start: 20090223
  3. CARDURA [Concomitant]
  4. ENALAPRIL MALEATE [Concomitant]
  5. FUTURAN [Concomitant]
  6. AMARYL [Concomitant]

REACTIONS (8)
  - ABDOMINAL PAIN UPPER [None]
  - BRADYCARDIA [None]
  - CARDIAC HYPERTROPHY [None]
  - CHEST PAIN [None]
  - DISCOMFORT [None]
  - DRUG INTERACTION [None]
  - DYSPNOEA [None]
  - ELECTROCARDIOGRAM T WAVE INVERSION [None]
